FAERS Safety Report 18504864 (Version 1)
Quarter: 2020Q4

REPORT INFORMATION
  Report Type: Spontaneous
  Country: US (occurrence: US)
  Receive Date: 20201115
  Receipt Date: 20201115
  Transmission Date: 20210114
  Serious: Yes (Other)
  Sender: FDA-Public Use
  Company Number: US-009507513-2011USA006475

PATIENT
  Sex: Female

DRUGS (1)
  1. ETONOGESTREL (+) ETHINYL ESTRADIOL [Suspect]
     Active Substance: ETHINYL ESTRADIOL\ETONOGESTREL
     Indication: ENDOMETRIOSIS
     Dosage: 1 RING (3 RINGS)
     Route: 067
     Dates: start: 202009, end: 20201104

REACTIONS (10)
  - Suicidal ideation [Unknown]
  - Vomiting [Unknown]
  - Diarrhoea [Recovered/Resolved]
  - Headache [Unknown]
  - Mood swings [Unknown]
  - Nausea [Unknown]
  - Hypertension [Unknown]
  - Weight increased [Unknown]
  - Product use in unapproved indication [Unknown]
  - Breast enlargement [Recovered/Resolved]

NARRATIVE: CASE EVENT DATE: 2020
